FAERS Safety Report 23884008 (Version 1)
Quarter: 2024Q2

REPORT INFORMATION
  Report Type: Spontaneous
  Country: FR (occurrence: FR)
  Receive Date: 20240522
  Receipt Date: 20240522
  Transmission Date: 20240716
  Serious: Yes (Other)
  Sender: FDA-Public Use
  Company Number: None

PATIENT

DRUGS (3)
  1. PROPRANOLOL [Suspect]
     Active Substance: PROPRANOLOL HYDROCHLORIDE
     Indication: Product used for unknown indication
     Dosage: 40 MG IN TOTAL
     Route: 048
     Dates: start: 20240411, end: 20240411
  2. DIAZEPAM [Suspect]
     Active Substance: DIAZEPAM
     Indication: Product used for unknown indication
     Dosage: 5 MG IN TOTAL
     Route: 048
     Dates: start: 20240411, end: 20240411
  3. TRIHEXYPHENIDYL HYDROCHLORIDE [Suspect]
     Active Substance: TRIHEXYPHENIDYL HYDROCHLORIDE
     Indication: Product used for unknown indication
     Dosage: 1 DF IN TOTAL
     Route: 048
     Dates: start: 20240411, end: 20240411

REACTIONS (6)
  - Bradycardia [Recovered/Resolved]
  - Agitation [Recovered/Resolved]
  - Wrong patient received product [Unknown]
  - Product administration error [Unknown]
  - Product use issue [Unknown]
  - Off label use [Unknown]

NARRATIVE: CASE EVENT DATE: 20240411
